FAERS Safety Report 6710383-5 (Version None)
Quarter: 2010Q2

REPORT INFORMATION
  Report Type: 
  Country: None (occurrence: None)
  Receive Date: 20100430
  Receipt Date: 20090820
  Transmission Date: 20101027
  Serious: Yes (Death, Hospitalization)
  Sender: FDA-Public Use
  Company Number: CTI_01081_2009

PATIENT
  Age: 81 Year
  Sex: Male

DRUGS (10)
  1. SPECTRACEF [Suspect]
     Indication: PHARYNGITIS
     Dosage: 300 MG QD ORAL
     Route: 048
     Dates: start: 20090423, end: 20090507
  2. ACETYLSALICYLIC ACID W/CAFFEINE /SALICYLAMIDE (PL SALICYLAMIDE/ACETAMI [Suspect]
     Indication: PHARYNGITIS
     Dosage: 3 G ORAL
     Route: 048
     Dates: start: 20090423, end: 20090427
  3. OLOPATADINE HYDROCHLORIDE [Suspect]
     Indication: RHINITIS
     Dosage: 10 MG ORAL
     Route: 048
     Dates: start: 20090423, end: 20090427
  4. CYTOTEC [Suspect]
     Indication: GASTRITIS
     Dosage: 300 MG ORAL
     Route: 048
     Dates: start: 20090423, end: 20090502
  5. DICLOFENAC SODIUM [Suspect]
     Indication: ARTHRITIS
     Dosage: 75 MG ORAL
     Route: 048
     Dates: start: 20090423, end: 20090502
  6. CARBOCISTEINE [Concomitant]
  7. TEPRENONE [Concomitant]
  8. TELMISARTAN [Concomitant]
  9. BENIDIPINE HYDROCHLORIDE [Concomitant]
  10. AMBROXOL HYDROCHLORIDE [Concomitant]

REACTIONS (12)
  - ANTINUCLEAR ANTIBODY POSITIVE [None]
  - BILIARY DILATATION [None]
  - BLOOD IMMUNOGLOBULIN G INCREASED [None]
  - CONTINUOUS HAEMODIAFILTRATION [None]
  - DIALYSIS [None]
  - GENERAL PHYSICAL HEALTH DETERIORATION [None]
  - HEPATITIS FULMINANT [None]
  - JAUNDICE CHOLESTATIC [None]
  - LIVER DISORDER [None]
  - PLATELET COUNT DECREASED [None]
  - RENAL FAILURE ACUTE [None]
  - TREMOR [None]
